FAERS Safety Report 6699843-3 (Version None)
Quarter: 2010Q2

REPORT INFORMATION
  Report Type: 
  Country: None (occurrence: None)
  Receive Date: 20100427
  Receipt Date: 20100427
  Transmission Date: 20101027
  Serious: Yes (Disabling)
  Sender: FDA-Public Use
  Company Number: None

PATIENT
  Sex: Male
  Weight: 72.5755 kg

DRUGS (1)
  1. NAMENDA [Suspect]
     Indication: OBSESSIVE-COMPULSIVE DISORDER
     Dosage: 5 MG 1 X DAY
     Dates: start: 20060101

REACTIONS (3)
  - DEAFNESS UNILATERAL [None]
  - HYPOACUSIS [None]
  - OFF LABEL USE [None]
